FAERS Safety Report 5927012-0 (Version None)
Quarter: 2008Q4

REPORT INFORMATION
  Report Type: 
  Country: None (occurrence: None)
  Receive Date: 20081021
  Receipt Date: 20081021
  Transmission Date: 20090506
  Serious: Yes (Death, Life-Threatening)
  Sender: FDA-Public Use
  Company Number: None

PATIENT
  Age: 82 Year
  Sex: Female
  Weight: 75.7507 kg

DRUGS (15)
  1. WARFARIN SODIUM [Suspect]
     Indication: ANTICOAGULANT THERAPY
     Dosage: 2.5 MG X 1 PO
     Route: 048
     Dates: start: 20080923, end: 20080923
  2. WARFARIN SODIUM [Suspect]
     Indication: CEREBROVASCULAR ACCIDENT
     Dosage: 2.5 MG X 1 PO
     Route: 048
     Dates: start: 20080923, end: 20080923
  3. ASPIRIN [Suspect]
     Indication: ANTICOAGULANT THERAPY
     Dosage: 324 MG X 1 PO
     Route: 048
     Dates: start: 20080923, end: 20080923
  4. ASPIRIN [Suspect]
     Indication: CEREBROVASCULAR ACCIDENT
     Dosage: 324 MG X 1 PO
     Route: 048
     Dates: start: 20080923, end: 20080923
  5. NITROGLYCERIN [Concomitant]
  6. NORCO [Concomitant]
  7. PROAIR HFA [Concomitant]
  8. LASIX [Concomitant]
  9. BUSPAR [Concomitant]
  10. PRAVACHOL [Concomitant]
  11. ATENOLOL [Concomitant]
  12. CARTIA XT [Concomitant]
  13. IMDUR [Concomitant]
  14. DIOVAN [Concomitant]
  15. DURAGESIC-100 [Concomitant]

REACTIONS (1)
  - HAEMORRHAGIC CEREBRAL INFARCTION [None]
